FAERS Safety Report 8810818 (Version 2)
Quarter: 2012Q4

REPORT INFORMATION
  Report Type: 
  Country: US (occurrence: US)
  Receive Date: 20120927
  Receipt Date: 20121102
  Transmission Date: 20130627
  Serious: Yes (Hospitalization, Other)
  Sender: FDA-Public Use
  Company Number: US-SANOFI-AVENTIS-2012SA068492

PATIENT
  Age: 63 Year
  Sex: Female
  Weight: 77.27 kg

DRUGS (3)
  1. LANTUS SOLOSTAR [Suspect]
     Indication: DIABETES
     Dosage: Dose:12 unit(s)
     Route: 058
     Dates: start: 2007
  2. SOLOSTAR [Suspect]
     Indication: DIABETES
     Dates: start: 2007
  3. HUMALOG [Suspect]
     Route: 065

REACTIONS (3)
  - Lower limb fracture [Unknown]
  - Accident [Unknown]
  - Hypoglycaemic unconsciousness [Unknown]
